FAERS Safety Report 4418120-4 (Version None)
Quarter: 2004Q3

REPORT INFORMATION
  Report Type: 
  Country: None (occurrence: None)
  Receive Date: 20040809
  Receipt Date: 20040609
  Transmission Date: 20050211
  Serious: Yes (Death, Hospitalization, Other)
  Sender: FDA-Public Use
  Company Number: 200414410US

PATIENT
  Sex: Male
  Weight: 64.1 kg

DRUGS (9)
  1. TAXOTERE [Suspect]
     Indication: PROSTATE CANCER
     Route: 042
     Dates: start: 20030516, end: 20030902
  2. ESTRAMUSTINE [Concomitant]
     Indication: PROSTATE CANCER
     Dosage: DOSE: 280 DI-S TREATMENT
     Route: 048
     Dates: start: 20030816, end: 20030902
  3. ATENOLOL [Concomitant]
     Indication: HYPERTENSION
     Route: 048
  4. HYDROCHLOROTHIAZIDE [Concomitant]
     Indication: HYPERTENSION
     Route: 048
  5. ASPIRIN [Concomitant]
     Indication: ANTICOAGULANT THERAPY
     Route: 048
  6. CELLUVISC [Concomitant]
     Dosage: DOSE: 1 DROP EACH EYE
     Route: 031
  7. DECADRON [Concomitant]
     Indication: PROSTATE CANCER
     Dosage: DOSE: 8 24 TO48 HOURS AFTER TREATMENT
     Route: 048
     Dates: start: 20030816, end: 20030902
  8. COUMADIN [Concomitant]
     Route: 048
  9. LIPITOR [Concomitant]
     Indication: ANTICOAGULANT THERAPY
     Route: 048

REACTIONS (14)
  - BLOOD ALBUMIN DECREASED [None]
  - DACRYOSTENOSIS ACQUIRED [None]
  - EYE IRRITATION [None]
  - EYE PAIN [None]
  - HAEMATOCRIT DECREASED [None]
  - HAEMOGLOBIN DECREASED [None]
  - KERATOCONJUNCTIVITIS SICCA [None]
  - LACRIMATION INCREASED [None]
  - PCO2 DECREASED [None]
  - PLATELET COUNT DECREASED [None]
  - PROSTATE CANCER METASTATIC [None]
  - PROTHROMBIN TIME PROLONGED [None]
  - RESPIRATORY RATE INCREASED [None]
  - WHITE BLOOD CELL COUNT INCREASED [None]
